FAERS Safety Report 9404088 (Version 1)
Quarter: 2013Q3

REPORT INFORMATION
  Report Type: Spontaneous
  Country: JP (occurrence: JP)
  Receive Date: 20130717
  Receipt Date: 20130717
  Transmission Date: 20140515
  Serious: Yes (Other)
  Sender: FDA-Public Use
  Company Number: JP-JNJFOC-20130708036

PATIENT
  Sex: 0

DRUGS (4)
  1. DOXORUBICIN [Suspect]
     Indication: BLADDER CANCER
     Dosage: DAY 2
     Route: 042
  2. CISPLATIN [Suspect]
     Indication: BLADDER CANCER
     Dosage: DAY 2
     Route: 065
  3. METHOTREXATE [Suspect]
     Indication: BLADDER CANCER
     Dosage: DAY 1, 15 AND 22
     Route: 065
  4. VINBLASTINE [Suspect]
     Indication: BLADDER CANCER
     Dosage: DAY 2, 15 AND 22
     Route: 065

REACTIONS (2)
  - Metastases to bone [Unknown]
  - Off label use [Unknown]
